FAERS Safety Report 19117584 (Version 1)
Quarter: 2021Q2

REPORT INFORMATION
  Report Type: Report from Study
  Country: IT (occurrence: IT)
  Receive Date: 20210409
  Receipt Date: 20210409
  Transmission Date: 20210717
  Serious: Yes (Death, Other)
  Sender: FDA-Public Use
  Company Number: IT-JNJFOC-20210405612

PATIENT

DRUGS (26)
  1. RISPERDAL [Suspect]
     Active Substance: RISPERIDONE
     Indication: BEHAVIOUR DISORDER
  2. RISPERDAL [Suspect]
     Active Substance: RISPERIDONE
     Indication: PERSONALITY DISORDER
  3. ARIPIPRAZOLE. [Suspect]
     Active Substance: ARIPIPRAZOLE
     Indication: SCHIZOPHRENIA
     Route: 065
  4. ARIPIPRAZOLE. [Suspect]
     Active Substance: ARIPIPRAZOLE
     Indication: AUTISM SPECTRUM DISORDER
  5. ARIPIPRAZOLE. [Suspect]
     Active Substance: ARIPIPRAZOLE
     Indication: MOTOR DYSFUNCTION
  6. ARIPIPRAZOLE. [Suspect]
     Active Substance: ARIPIPRAZOLE
     Indication: OBSESSIVE-COMPULSIVE DISORDER
  7. RISPERDAL [Suspect]
     Active Substance: RISPERIDONE
     Indication: DEPRESSION
  8. PALIPERIDONE. [Suspect]
     Active Substance: PALIPERIDONE
     Indication: PRODUCT USED FOR UNKNOWN INDICATION
     Route: 048
  9. RISPERDAL [Suspect]
     Active Substance: RISPERIDONE
     Indication: ATTENTION DEFICIT HYPERACTIVITY DISORDER
  10. RISPERDAL [Suspect]
     Active Substance: RISPERIDONE
     Indication: ANXIETY DISORDER
  11. QUETIAPINE. [Suspect]
     Active Substance: QUETIAPINE
     Indication: PRODUCT USED FOR UNKNOWN INDICATION
     Route: 065
  12. RISPERDAL [Suspect]
     Active Substance: RISPERIDONE
     Indication: IMPULSE-CONTROL DISORDER
  13. RISPERDAL [Suspect]
     Active Substance: RISPERIDONE
     Indication: AUTISM SPECTRUM DISORDER
  14. RISPERDAL [Suspect]
     Active Substance: RISPERIDONE
     Indication: MOTOR DYSFUNCTION
  15. RISPERDAL [Suspect]
     Active Substance: RISPERIDONE
     Indication: OBSESSIVE-COMPULSIVE DISORDER
  16. ARIPIPRAZOLE. [Suspect]
     Active Substance: ARIPIPRAZOLE
     Indication: IMPULSE-CONTROL DISORDER
  17. ARIPIPRAZOLE. [Suspect]
     Active Substance: ARIPIPRAZOLE
     Indication: ATTENTION DEFICIT HYPERACTIVITY DISORDER
  18. ARIPIPRAZOLE. [Suspect]
     Active Substance: ARIPIPRAZOLE
     Indication: BIPOLAR DISORDER
  19. ARIPIPRAZOLE. [Suspect]
     Active Substance: ARIPIPRAZOLE
     Indication: DISTURBANCE IN SOCIAL BEHAVIOUR
  20. ARIPIPRAZOLE. [Suspect]
     Active Substance: ARIPIPRAZOLE
     Indication: BEHAVIOUR DISORDER
  21. RISPERDAL [Suspect]
     Active Substance: RISPERIDONE
     Indication: SCHIZOPHRENIA
     Route: 065
  22. ARIPIPRAZOLE. [Suspect]
     Active Substance: ARIPIPRAZOLE
     Indication: ANXIETY DISORDER
  23. RISPERDAL [Suspect]
     Active Substance: RISPERIDONE
     Indication: BIPOLAR DISORDER
  24. RISPERDAL [Suspect]
     Active Substance: RISPERIDONE
     Indication: DISTURBANCE IN SOCIAL BEHAVIOUR
  25. ARIPIPRAZOLE. [Suspect]
     Active Substance: ARIPIPRAZOLE
     Indication: DEPRESSION
  26. ARIPIPRAZOLE. [Suspect]
     Active Substance: ARIPIPRAZOLE
     Indication: PERSONALITY DISORDER

REACTIONS (19)
  - Metabolic disorder [Unknown]
  - Death [Fatal]
  - Injury [Unknown]
  - Reproductive tract disorder [Unknown]
  - Nervous system disorder [Unknown]
  - Endocrine disorder [Unknown]
  - Eye disorder [Unknown]
  - Overweight [Unknown]
  - Gastrointestinal disorder [Unknown]
  - Breast disorder [Unknown]
  - Administration site reaction [Unknown]
  - General physical condition [Unknown]
  - Mental disorder [Unknown]
  - Procedural complication [Unknown]
  - Musculoskeletal disorder [Unknown]
  - Poisoning [Unknown]
  - Obesity [Unknown]
  - Weight increased [Unknown]
  - Gynaecomastia [Unknown]
